FAERS Safety Report 8765673 (Version 3)
Quarter: 2013Q3

REPORT INFORMATION
  Report Type: Report from Study
  Country: KR (occurrence: KR)
  Receive Date: 20120904
  Receipt Date: 20130731
  Transmission Date: 20140515
  Serious: Yes (Hospitalization)
  Sender: FDA-Public Use
  Company Number: PHHO2012KR011840

PATIENT
  Age: 36 Year
  Sex: Female
  Weight: 38.9 kg

DRUGS (4)
  1. AFINITOR [Suspect]
     Indication: METASTATIC GASTRIC CANCER
     Dosage: 10 MG, QD
     Route: 048
     Dates: start: 20120526, end: 20120812
  2. OCTREOTIDE [Concomitant]
     Indication: PANCREATITIS
     Dosage: 0.3 MG, UNK
     Route: 058
     Dates: start: 20120813
  3. DEXAMETHASONE [Concomitant]
     Indication: VOMITING
     Dosage: 12 MG, UNK
     Route: 042
     Dates: start: 20120813
  4. FAMOTIDINE [Concomitant]
     Indication: PROPHYLAXIS
     Dosage: 20 MG, UNK
     Route: 042
     Dates: start: 20120812

REACTIONS (1)
  - Pancreatitis [Recovered/Resolved]
